FAERS Safety Report 10257877 (Version 1)
Quarter: 2014Q2

REPORT INFORMATION
  Report Type: Spontaneous
  Country: JP (occurrence: JP)
  Receive Date: 20140625
  Receipt Date: 20140625
  Transmission Date: 20141212
  Serious: Yes (Death, Life-Threatening)
  Sender: FDA-Public Use
  Company Number: JP-BRISTOL-MYERS SQUIBB COMPANY-21020854

PATIENT
  Age: 88 Year
  Sex: Male
  Weight: 38.8 kg

DRUGS (9)
  1. ERBITUX SOLN FOR INF 5MG/ML [Suspect]
     Indication: OROPHARYNGEAL CANCER
     Dosage: 340MG/WEEK
     Route: 041
     Dates: start: 20131028, end: 20131230
  2. DEXART [Concomitant]
     Route: 042
  3. UNASYN [Concomitant]
  4. VANCOMYCIN HCL [Concomitant]
  5. MEROPEN [Concomitant]
     Route: 042
  6. MEDROL [Concomitant]
     Route: 042
  7. HABEKACIN [Concomitant]
     Route: 042
  8. PREDONINE [Concomitant]
     Route: 042
  9. PAZUCROSS [Concomitant]
     Route: 042

REACTIONS (3)
  - Intestinal perforation [Fatal]
  - Acute respiratory distress syndrome [Recovered/Resolved]
  - Interstitial lung disease [Recovered/Resolved]
